FAERS Safety Report 24106653 (Version 5)
Quarter: 2024Q4

REPORT INFORMATION
  Report Type: Spontaneous
  Country: US (occurrence: US)
  Receive Date: 20240717
  Receipt Date: 20241230
  Transmission Date: 20250115
  Serious: Yes (Other)
  Sender: ELI LILLY AND COMPANY
  Company Number: US-ELI_LILLY_AND_COMPANY-US202407008810

PATIENT
  Age: 50 Year
  Sex: Female

DRUGS (2)
  1. VERZENIO [Suspect]
     Active Substance: ABEMACICLIB
     Indication: Breast cancer female
     Dosage: 150 MG, UNKNOWN
     Route: 048
  2. VERZENIO [Suspect]
     Active Substance: ABEMACICLIB
     Dosage: 100 MG, BID
     Route: 048

REACTIONS (8)
  - Syncope [Recovering/Resolving]
  - Neuropathy peripheral [Unknown]
  - Productive cough [Unknown]
  - Abdominal pain upper [Not Recovered/Not Resolved]
  - Weight increased [Unknown]
  - Nausea [Recovering/Resolving]
  - Fatigue [Unknown]
  - Diarrhoea [Unknown]
